FAERS Safety Report 24047967 (Version 1)
Quarter: 2024Q3

REPORT INFORMATION
  Report Type: Spontaneous
  Country: US (occurrence: US)
  Receive Date: 20240703
  Receipt Date: 20240703
  Transmission Date: 20241017
  Serious: Yes (Hospitalization)
  Sender: ATHENA
  Company Number: US-SABAL THERAPEUTICS LLC-2024-ATH-000016

PATIENT

DRUGS (2)
  1. OZOBAX [Suspect]
     Active Substance: BACLOFEN
     Indication: Tetanus
     Dosage: 10 MG, TID
     Route: 048
  2. OZOBAX [Suspect]
     Active Substance: BACLOFEN
     Dosage: 20 MG, TID
     Route: 048

REACTIONS (1)
  - Drug ineffective for unapproved indication [Unknown]
